FAERS Safety Report 6096919-9 (Version None)
Quarter: 2009Q1

REPORT INFORMATION
  Report Type: 
  Country: None (occurrence: None)
  Receive Date: 20090227
  Receipt Date: 20090216
  Transmission Date: 20090719
  Serious: Yes (Other)
  Sender: FDA-Public Use
  Company Number: IN-PFIZER INC-2009171054

PATIENT

DRUGS (2)
  1. VINCRISTINE SULFATE [Suspect]
     Indication: B-CELL TYPE ACUTE LEUKAEMIA
     Dosage: 1.5 MG/M2, UNK
  2. FLUCONAZOLE [Suspect]

REACTIONS (1)
  - VOCAL CORD PARALYSIS [None]
